FAERS Safety Report 6054681-X (Version None)
Quarter: 2009Q1

REPORT INFORMATION
  Report Type: 
  Country: None (occurrence: None)
  Receive Date: 20090128
  Receipt Date: 20090116
  Transmission Date: 20090719
  Serious: Yes (Death)
  Sender: FDA-Public Use
  Company Number: US-RANBAXY-2009RR-21164

PATIENT
  Age: 51 Year
  Sex: Female

DRUGS (7)
  1. METFORMIN HCL [Suspect]
     Indication: COMPLETED SUICIDE
     Route: 048
  2. VENLAFAXINE HCL [Suspect]
     Indication: COMPLETED SUICIDE
     Route: 048
  3. DOXEPIN HCL [Suspect]
     Indication: COMPLETED SUICIDE
     Route: 048
  4. TRAMADOL HCL [Suspect]
     Indication: COMPLETED SUICIDE
     Route: 048
  5. NORTRIPTYLINE HCL [Suspect]
     Indication: COMPLETED SUICIDE
  6. ZOLPIDEM TARTRATE [Suspect]
     Indication: COMPLETED SUICIDE
     Route: 048
  7. ZIPRASIDONE [Suspect]
     Indication: COMPLETED SUICIDE
     Route: 048

REACTIONS (1)
  - COMPLETED SUICIDE [None]
